FAERS Safety Report 9432825 (Version 1)
Quarter: 2013Q3

REPORT INFORMATION
  Report Type: Spontaneous
  Country: FR (occurrence: None)
  Receive Date: 20130729
  Receipt Date: 20130729
  Transmission Date: 20140515
  Serious: Yes (Hospitalization)
  Sender: FDA-Public Use
  Company Number: IMP_06757_2013

PATIENT
  Age: 68 Year
  Sex: Male

DRUGS (1)
  1. OMEPRAZOLE (OMEPRAZOLE) [Suspect]
     Indication: HIATUS HERNIA
     Dosage: (DF)

REACTIONS (3)
  - Hypokalaemia [None]
  - Hypocalcaemic seizure [None]
  - Hypomagnesaemia [None]
